FAERS Safety Report 14605559 (Version 1)
Quarter: 2018Q1

REPORT INFORMATION
  Report Type: Other
  Country: US (occurrence: US)
  Receive Date: 20180306
  Receipt Date: 20180306
  Transmission Date: 20180509
  Serious: No
  Sender: FDA-Public Use
  Company Number: US-INTERCEPT-PMOCA2017001734

PATIENT

DRUGS (1)
  1. OCALIVA [Suspect]
     Active Substance: OBETICHOLIC ACID
     Indication: PRIMARY BILIARY CHOLANGITIS
     Dosage: 5 MG, QD
     Route: 065
     Dates: start: 20171208, end: 20171218

REACTIONS (5)
  - Headache [Recovered/Resolved]
  - Chromaturia [Recovered/Resolved]
  - Dysphagia [Recovered/Resolved]
  - Arthralgia [Recovered/Resolved]
  - Nausea [Recovered/Resolved]
